FAERS Safety Report 24636301 (Version 2)
Quarter: 2024Q4

REPORT INFORMATION
  Report Type: Spontaneous
  Country: US (occurrence: US)
  Receive Date: 20241119
  Receipt Date: 20241218
  Transmission Date: 20250114
  Serious: Yes (Life-Threatening, Hospitalization)
  Sender: TEVA
  Company Number: US-TEVA-VS-3264912

PATIENT
  Age: 9 Year
  Sex: Male

DRUGS (5)
  1. ALBUTEROL [Suspect]
     Active Substance: ALBUTEROL
     Indication: Cough
     Route: 055
  2. ALBUTEROL [Suspect]
     Active Substance: ALBUTEROL
     Indication: Dyspnoea
  3. ALBUTEROL [Suspect]
     Active Substance: ALBUTEROL
  4. ALBUTEROL [Suspect]
     Active Substance: ALBUTEROL
  5. PREDNISONE [Suspect]
     Active Substance: PREDNISONE
     Indication: Cough
     Route: 065

REACTIONS (1)
  - Therapy non-responder [Unknown]
